FAERS Safety Report 4928419-0 (Version None)
Quarter: 2006Q1

REPORT INFORMATION
  Report Type: 
  Country: None (occurrence: None)
  Receive Date: 20060223
  Receipt Date: 20060215
  Transmission Date: 20060701
  Serious: Yes (Other)
  Sender: FDA-Public Use
  Company Number: 200610204BNE

PATIENT
  Sex: Female

DRUGS (1)
  1. ADALAT [Suspect]
     Indication: RAYNAUD'S PHENOMENON
     Dosage: 10 MG, TOTAL DAILY, ORAL
     Route: 048

REACTIONS (1)
  - EPILEPSY [None]
